FAERS Safety Report 13758737 (Version 2)
Quarter: 2017Q3

REPORT INFORMATION
  Report Type: Spontaneous
  Country: IT (occurrence: IT)
  Receive Date: 20170717
  Receipt Date: 20170728
  Transmission Date: 20171127
  Serious: Yes (Other)
  Sender: FDA-Public Use
  Company Number: PHHY2017IT100950

PATIENT
  Age: 84 Year
  Sex: Male
  Weight: 71 kg

DRUGS (2)
  1. XARELTO [Suspect]
     Active Substance: RIVAROXABAN
     Indication: PRODUCT USED FOR UNKNOWN INDICATION
     Route: 065
  2. FEMARA [Suspect]
     Active Substance: LETROZOLE
     Indication: BREAST CANCER
     Dosage: 2.5 MG, QD
     Route: 048

REACTIONS (14)
  - Respiratory failure [Unknown]
  - Erythema [Unknown]
  - Arthralgia [Unknown]
  - Productive cough [Unknown]
  - Dyspnoea [Unknown]
  - Affective disorder [Unknown]
  - Quality of life decreased [Unknown]
  - Dysphonia [Unknown]
  - Sensory disturbance [Unknown]
  - Varicose vein [Unknown]
  - Somnolence [Unknown]
  - Atrial fibrillation [Unknown]
  - Decreased appetite [Unknown]
  - Vein disorder [Unknown]

NARRATIVE: CASE EVENT DATE: 20170206
